FAERS Safety Report 7551664-5 (Version None)
Quarter: 2011Q2

REPORT INFORMATION
  Report Type: 
  Country: None (occurrence: None)
  Receive Date: 20110616
  Receipt Date: 20110608
  Transmission Date: 20111010
  Serious: Yes (Disabling)
  Sender: FDA-Public Use
  Company Number: FI-TEVA-286514ISR

PATIENT
  Sex: Female

DRUGS (1)
  1. COPAXONE [Suspect]
     Indication: MULTIPLE SCLEROSIS
     Dosage: 20 MILLIGRAM;
     Route: 058
     Dates: start: 20101101, end: 20110430

REACTIONS (4)
  - EAR INFECTION [None]
  - SINUSITIS [None]
  - URINARY TRACT INFECTION [None]
  - VAGINAL INFECTION [None]
